FAERS Safety Report 9837630 (Version 1)
Quarter: 2014Q1

REPORT INFORMATION
  Report Type: Spontaneous
  Country: US (occurrence: US)
  Receive Date: 20140123
  Receipt Date: 20140123
  Transmission Date: 20141002
  Serious: No
  Sender: FDA-Public Use
  Company Number: US-BAYER-2014-011745

PATIENT
  Age: 77 Year
  Sex: Female
  Weight: 54.88 kg

DRUGS (7)
  1. ALEVE GELCAPS [Suspect]
     Indication: ANALGESIC THERAPY
     Dosage: 1 DF, PRN
     Route: 048
  2. CENTRUM [Concomitant]
  3. FISH OIL [Concomitant]
  4. TURMERIC [Concomitant]
  5. MILK THISTLE [Concomitant]
  6. CALCIUM [Concomitant]
  7. PREDNISONE [Concomitant]

REACTIONS (1)
  - Drug ineffective [None]
